FAERS Safety Report 8998928 (Version 1)
Quarter: 2013Q1

REPORT INFORMATION
  Report Type: Spontaneous
  Country: US (occurrence: US)
  Receive Date: 20130103
  Receipt Date: 20130103
  Transmission Date: 20140127
  Serious: Yes (Other)
  Sender: FDA-Public Use
  Company Number: US-BAYER-2012-136290

PATIENT
  Sex: 0

DRUGS (1)
  1. NEXAVAR [Suspect]
     Indication: HEPATOCELLULAR CARCINOMA

REACTIONS (1)
  - Pancreatitis [None]
